FAERS Safety Report 15306791 (Version 1)
Quarter: 2018Q3

REPORT INFORMATION
  Report Type: Spontaneous
  Country: US (occurrence: US)
  Receive Date: 20180822
  Receipt Date: 20180822
  Transmission Date: 20181010
  Serious: No
  Sender: FDA-Public Use
  Company Number: US-TEVA-2018-US-945915

PATIENT
  Sex: Female

DRUGS (1)
  1. QVAR REDIHALER [Suspect]
     Active Substance: BECLOMETHASONE DIPROPIONATE
     Route: 065
     Dates: start: 20180812

REACTIONS (5)
  - Dry mouth [Unknown]
  - Oropharyngeal pain [Unknown]
  - Dysphagia [Unknown]
  - Dry throat [Unknown]
  - Device issue [Unknown]
